FAERS Safety Report 7688599-3 (Version None)
Quarter: 2011Q3

REPORT INFORMATION
  Report Type: 
  Country: None (occurrence: None)
  Receive Date: 20110817
  Receipt Date: 20110811
  Transmission Date: 20111222
  Serious: Yes (Hospitalization, Other)
  Sender: FDA-Public Use
  Company Number: AU-B.I. PHARMACEUTICALS,INC./RIDGEFIELD-2011-AU-00777AU

PATIENT
  Age: 84 Year
  Sex: Female

DRUGS (1)
  1. PRADAXA [Suspect]
     Indication: ATRIAL FIBRILLATION

REACTIONS (3)
  - DYSPLASIA [None]
  - RENAL FAILURE ACUTE [None]
  - HAEMOGLOBIN DECREASED [None]
